FAERS Safety Report 4457496-9 (Version None)
Quarter: 2004Q3

REPORT INFORMATION
  Report Type: 
  Country: None (occurrence: None)
  Receive Date: 20040922
  Receipt Date: 20040914
  Transmission Date: 20050211
  Serious: Yes (Other)
  Sender: FDA-Public Use
  Company Number: 200413586BCC

PATIENT
  Age: 74 Year
  Sex: Female
  Weight: 29.4838 kg

DRUGS (2)
  1. MILK OF MAGNESIA TAB [Suspect]
     Indication: CONSTIPATION
     Dosage: 60 ML, ORAL
     Route: 048
  2. DARVOCET-N 100 [Concomitant]

REACTIONS (2)
  - DISEASE RECURRENCE [None]
  - RECTAL HAEMORRHAGE [None]
